FAERS Safety Report 15575040 (Version 2)
Quarter: 2018Q4

REPORT INFORMATION
  Report Type: Other
  Country: US (occurrence: US)
  Receive Date: 20181101
  Receipt Date: 20181204
  Transmission Date: 20190205
  Serious: Yes (Hospitalization, Other)
  Sender: FDA-Public Use
  Company Number: US-ACORDA-ACO_149333_2018

PATIENT
  Sex: Male

DRUGS (1)
  1. AMPYRA [Suspect]
     Active Substance: DALFAMPRIDINE
     Indication: MULTIPLE SCLEROSIS
     Dosage: 10 MG, BID
     Route: 048
     Dates: start: 20180420

REACTIONS (11)
  - Constipation [Unknown]
  - Gastrointestinal disorder [Unknown]
  - Multiple sclerosis relapse [Unknown]
  - Diarrhoea [Unknown]
  - Dyspnoea [Unknown]
  - Asthenia [Unknown]
  - Lung neoplasm malignant [Unknown]
  - Gait disturbance [Unknown]
  - Therapy cessation [Unknown]
  - Influenza [Unknown]
  - Wrong technique in product usage process [Unknown]

NARRATIVE: CASE EVENT DATE: 2018
